FAERS Safety Report 11588935 (Version 3)
Quarter: 2015Q4

REPORT INFORMATION
  Report Type: Spontaneous
  Country: ID (occurrence: ID)
  Receive Date: 20151002
  Receipt Date: 20151013
  Transmission Date: 20160304
  Serious: Yes (Death, Hospitalization, Other)
  Sender: FDA-Public Use
  Company Number: ID-BAYER-2015-428137

PATIENT
  Sex: Male

DRUGS (1)
  1. NEXAVAR [Suspect]
     Active Substance: SORAFENIB
     Indication: RENAL CELL CARCINOMA
     Dosage: UNK
     Route: 048
     Dates: start: 20150918, end: 20150925

REACTIONS (6)
  - Bedridden [None]
  - General physical health deterioration [None]
  - Mouth ulceration [None]
  - Dysphagia [None]
  - Depressed level of consciousness [None]
  - Renal cell carcinoma [Fatal]

NARRATIVE: CASE EVENT DATE: 20150920
